FAERS Safety Report 14770156 (Version 1)
Quarter: 2018Q2

REPORT INFORMATION
  Report Type: Spontaneous
  Country: PT (occurrence: PT)
  Receive Date: 20180417
  Receipt Date: 20180417
  Transmission Date: 20180711
  Serious: Yes (Hospitalization)
  Sender: FDA-Public Use
  Company Number: PT-BAUSCH-BL-2018-009781

PATIENT
  Age: 86 Year
  Sex: Female

DRUGS (2)
  1. PREDNISOLONE. [Suspect]
     Active Substance: PREDNISOLONE
     Indication: COGNITIVE DISORDER
     Dosage: DOSE REDUCED
     Route: 065
  2. PREDNISOLONE. [Suspect]
     Active Substance: PREDNISOLONE
     Indication: COGNITIVE DISORDER
     Dosage: 20 MG FOR 2 DAYS
     Route: 065
     Dates: start: 2017

REACTIONS (3)
  - Cerebrovascular accident [Unknown]
  - Hyperglycaemia [Recovered/Resolved]
  - Chorea [Unknown]
